FAERS Safety Report 23859931 (Version 1)
Quarter: 2024Q2

REPORT INFORMATION
  Report Type: Spontaneous
  Country: US (occurrence: US)
  Receive Date: 20240515
  Receipt Date: 20240515
  Transmission Date: 20240716
  Serious: No
  Sender: FDA-Public Use
  Company Number: US-SA-SAC20240508000103

PATIENT
  Sex: Male

DRUGS (1)
  1. DUPIXENT [Suspect]
     Active Substance: DUPILUMAB
     Indication: Eczema
     Dosage: 300 MG, QOW
     Route: 058
     Dates: start: 202403

REACTIONS (7)
  - Pruritus [Unknown]
  - Rash macular [Unknown]
  - Rash pruritic [Unknown]
  - Scratch [Unknown]
  - Dry eye [Unknown]
  - Incorrect dose administered [Unknown]
  - Drug ineffective [Unknown]
